FAERS Safety Report 5686481-4 (Version None)
Quarter: 2008Q1

REPORT INFORMATION
  Report Type: 
  Country: None (occurrence: None)
  Receive Date: 20080328
  Receipt Date: 20070718
  Transmission Date: 20080703
  Serious: No
  Sender: FDA-Public Use
  Company Number: US-BAYER-US-2007-025935

PATIENT
  Age: 39 Year
  Sex: Female
  Weight: 86 kg

DRUGS (4)
  1. MIRENA [Suspect]
     Indication: CONTRACEPTION
     Route: 015
     Dates: start: 20070507
  2. TRAZODONE HCL [Concomitant]
     Dosage: UNIT DOSE: 50 MG
     Route: 048
  3. ZYRTEC [Concomitant]
     Route: 048
  4. ACIPHEX [Concomitant]
     Route: 048

REACTIONS (2)
  - COITAL BLEEDING [None]
  - PROCEDURAL PAIN [None]
